FAERS Safety Report 5917247-5 (Version None)
Quarter: 2008Q4

REPORT INFORMATION
  Report Type: 
  Country: None (occurrence: None)
  Receive Date: 20081009
  Receipt Date: 20080924
  Transmission Date: 20090506
  Serious: Yes (Death, Hospitalization, Other)
  Sender: FDA-Public Use
  Company Number: 2008US002240

PATIENT
  Age: 48 Year
  Sex: Female

DRUGS (28)
  1. PROGRAF [Suspect]
     Indication: LIVER TRANSPLANT
     Dosage: 1 MG, ORAL; 2MG, BID, ORAL
     Route: 048
  2. NEXIUM (ESOMEPRAZOLE SODIUM) [Concomitant]
  3. CARVEDILOL [Concomitant]
  4. PLAVIX [Concomitant]
  5. SYNTHROID [Concomitant]
  6. MAGNESIUM OXIDE (MAGNESIUM OXIDE) [Concomitant]
  7. NEPHROCAPS (FOLIC ACID) [Concomitant]
  8. VITAMIN D NOS (VITAMIN D NOS) [Concomitant]
  9. VANCOMYCIN HYDROCHLORIDE [Concomitant]
  10. GENTAMICIN [Concomitant]
  11. CELLCEPT [Concomitant]
  12. LAC-HYDRIN [Concomitant]
  13. ZINC OXIDE (ZINC OXIDE) CREAM [Concomitant]
  14. ARANESP [Concomitant]
  15. MORPHINE SULFATE [Concomitant]
  16. ZOCOR [Concomitant]
  17. DAKIN'S SOLUTION (CHLORINATED SODA SOLUTION) [Concomitant]
  18. OXYCODONE HCL [Concomitant]
  19. SEROQUEL [Concomitant]
  20. CELEXA (CELECOXIB) [Concomitant]
  21. ZINC SULFATE (ZINC SULFATE) [Concomitant]
  22. HEPARIN [Concomitant]
  23. ASPIRIN (CITRIC ACID) [Concomitant]
  24. NOVOLOG [Concomitant]
  25. INSULIN (INSULIN) [Concomitant]
  26. LANTUS [Concomitant]
  27. AMBIEN [Concomitant]
  28. PERCOCET [Concomitant]

REACTIONS (23)
  - ACUTE MYOCARDIAL INFARCTION [None]
  - ANAEMIA [None]
  - BLOOD GLUCOSE INCREASED [None]
  - CARDIAC ARREST [None]
  - CARDIOGENIC SHOCK [None]
  - CARDIOPULMONARY FAILURE [None]
  - CEREBROVASCULAR ACCIDENT [None]
  - CLOSTRIDIUM DIFFICILE COLITIS [None]
  - DIABETES MELLITUS INADEQUATE CONTROL [None]
  - GANGRENE [None]
  - HAEMODIALYSIS [None]
  - HYPERGLYCAEMIA [None]
  - HYPERTENSION [None]
  - HYPOTENSION [None]
  - LETHARGY [None]
  - LOWER GASTROINTESTINAL HAEMORRHAGE [None]
  - PERIPHERAL ISCHAEMIA [None]
  - RENAL FAILURE ACUTE [None]
  - RESPIRATORY DISTRESS [None]
  - SEPTIC SHOCK [None]
  - STAPHYLOCOCCAL BACTERAEMIA [None]
  - URINARY TRACT INFECTION PSEUDOMONAL [None]
  - WOUND INFECTION [None]
